FAERS Safety Report 6471852-9 (Version None)
Quarter: 2009Q4

REPORT INFORMATION
  Report Type: 
  Country: None (occurrence: None)
  Receive Date: 20091203
  Receipt Date: 20080505
  Transmission Date: 20100525
  Serious: Yes (Hospitalization, Other)
  Sender: FDA-Public Use
  Company Number: US-ELI_LILLY_AND_COMPANY-US200803002986

PATIENT
  Sex: Female

DRUGS (4)
  1. FORTEO [Suspect]
     Indication: OSTEOPOROSIS
     Dosage: UNK, UNK
     Dates: start: 20061115, end: 20080219
  2. FORTEO [Suspect]
     Dosage: UNK, UNK
     Dates: start: 20080101
  3. METHOTREXATE [Concomitant]
     Dosage: UNK, UNK
     Dates: start: 19910101, end: 20080219
  4. NABUMETONE [Concomitant]
     Indication: RHEUMATOID ARTHRITIS

REACTIONS (2)
  - FALL [None]
  - HIP FRACTURE [None]
